FAERS Safety Report 10782670 (Version 1)
Quarter: 2015Q1

REPORT INFORMATION
  Report Type: Spontaneous
  Country: IT (occurrence: IT)
  Receive Date: 20150210
  Receipt Date: 20150210
  Transmission Date: 20150721
  Serious: Yes (Hospitalization)
  Sender: FDA-Public Use
  Company Number: IT-TEVA-538695ISR

PATIENT
  Age: 54 Year
  Sex: Female

DRUGS (11)
  1. LEVOFLOXACIN. [Suspect]
     Active Substance: LEVOFLOXACIN
     Indication: PRODUCT USED FOR UNKNOWN INDICATION
     Dosage: 1 G DAILY
     Route: 048
     Dates: start: 20150121, end: 20150126
  2. NITRODERM TTS - 5 MG/DIE CEROTTI TRANSDERMICI [Concomitant]
     Indication: PRODUCT USED FOR UNKNOWN INDICATION
  3. TAVOR - 1 MG COMPRESSE [Concomitant]
     Indication: PRODUCT USED FOR UNKNOWN INDICATION
  4. CARDIOASPIRIN - 100 MG COMPRESSE GASTRORESISTENTI [Concomitant]
     Active Substance: ASPIRIN
     Indication: PRODUCT USED FOR UNKNOWN INDICATION
     Dosage: GASTRO-RESISTANT TABLET
  5. APIDRA - 100 U/ML SOLUZIONE INIETTABILE [Concomitant]
     Indication: PRODUCT USED FOR UNKNOWN INDICATION
  6. TORVAST 40 - COMPRESSE 40 MG [Concomitant]
     Indication: PRODUCT USED FOR UNKNOWN INDICATION
  7. SPIRIVA - CAPSULE DA 18 MCG [Concomitant]
     Indication: PRODUCT USED FOR UNKNOWN INDICATION
  8. LANTUS - 100 IU/ML SOLUZIONE INIETTABILE [Concomitant]
     Indication: PRODUCT USED FOR UNKNOWN INDICATION
  9. ALDACTONE - 100 MG COMPRESSE RIVESTITE [Concomitant]
     Indication: PRODUCT USED FOR UNKNOWN INDICATION
  10. ALIFLUS DISKUS - 50/100 POLVERE PER INALAZIONE [Concomitant]
     Indication: PRODUCT USED FOR UNKNOWN INDICATION
  11. PARIET - COMPRESSE GASTRORESISTENTI 10 MG [Concomitant]
     Indication: PRODUCT USED FOR UNKNOWN INDICATION
     Dosage: GASTRO-RESISTANT TABLET

REACTIONS (2)
  - Confusional state [Recovering/Resolving]
  - Psychomotor hyperactivity [Recovering/Resolving]

NARRATIVE: CASE EVENT DATE: 20150123
